FAERS Safety Report 9474243 (Version 1)
Quarter: 2013Q3

REPORT INFORMATION
  Report Type: Spontaneous
  Country: GB (occurrence: GB)
  Receive Date: 20130823
  Receipt Date: 20130823
  Transmission Date: 20140515
  Serious: Yes (Disabling)
  Sender: FDA-Public Use
  Company Number: GB-BRISTOL-MYERS SQUIBB COMPANY-19196294

PATIENT
  Age: 30 Year
  Sex: Female
  Weight: 81 kg

DRUGS (8)
  1. ARIPIPRAZOLE [Suspect]
     Route: 048
     Dates: start: 2007, end: 2008
  2. DEPIXOL [Suspect]
     Route: 051
     Dates: start: 2004, end: 2007
  3. CODEINE [Concomitant]
  4. DIAZEPAM [Concomitant]
  5. LOPERAMIDE [Concomitant]
  6. LORATADINE [Concomitant]
  7. PENTASA [Concomitant]
  8. ZOLPIDEM [Concomitant]

REACTIONS (13)
  - Screaming [Unknown]
  - Activities of daily living impaired [Unknown]
  - Amnesia [Not Recovered/Not Resolved]
  - Injury [Unknown]
  - Anger [Not Recovered/Not Resolved]
  - Insomnia [Unknown]
  - Logorrhoea [Unknown]
  - Bradyphrenia [Not Recovered/Not Resolved]
  - Flashback [Unknown]
  - Brain injury [Unknown]
  - Anal abscess [Recovered/Resolved with Sequelae]
  - Disturbance in attention [Not Recovered/Not Resolved]
  - Tremor [Not Recovered/Not Resolved]
